FAERS Safety Report 12589725 (Version 1)
Quarter: 2016Q3

REPORT INFORMATION
  Report Type: Spontaneous
  Country: US (occurrence: US)
  Receive Date: 20160725
  Receipt Date: 20160725
  Transmission Date: 20161109
  Serious: Yes (Hospitalization, Other)
  Sender: FDA-Public Use
  Company Number: US-PFIZER INC-3206451

PATIENT
  Age: 29 Year
  Sex: Male

DRUGS (1)
  1. EPINEPHRINE. [Suspect]
     Active Substance: EPINEPHRINE
     Dosage: 5 C.C. 1:1000 AQUEOUS SOLUTION
     Route: 030
     Dates: start: 19450411

REACTIONS (7)
  - Accidental overdose [Recovered/Resolved]
  - Ventricular fibrillation [Recovered/Resolved]
  - Myocardial infarction [Recovered/Resolved]
  - Headache [Recovered/Resolved]
  - Extrasystoles [Recovered/Resolved]
  - Coronary artery insufficiency [Recovered/Resolved]
  - Arrhythmia [Recovered/Resolved]

NARRATIVE: CASE EVENT DATE: 19450411
